FAERS Safety Report 11681397 (Version 1)
Quarter: 2015Q4

REPORT INFORMATION
  Report Type: Spontaneous
  Country: DE (occurrence: DE)
  Receive Date: 20151029
  Receipt Date: 20151029
  Transmission Date: 20160304
  Serious: Yes (Other)
  Sender: FDA-Public Use
  Company Number: DE-DRREDDYS-GER/GER/15/0053583

PATIENT
  Age: 35 Year
  Sex: Female
  Weight: 71 kg

DRUGS (6)
  1. FEMIBION [Concomitant]
     Active Substance: VITAMINS
     Indication: PROPHYLAXIS OF NEURAL TUBE DEFECT
     Route: 048
     Dates: start: 20141008, end: 20150701
  2. ESTRIFAM [Concomitant]
     Active Substance: ESTRADIOL
     Indication: PROPHYLAXIS OF ABORTION
     Route: 067
     Dates: start: 20141021, end: 20141231
  3. CLEXANE [Concomitant]
     Active Substance: ENOXAPARIN SODIUM
     Indication: COAGULOPATHY
     Route: 058
     Dates: start: 20141027, end: 20141231
  4. ZIPRASIDONE. [Suspect]
     Active Substance: ZIPRASIDONE
     Indication: PSYCHOTIC DISORDER
     Route: 048
     Dates: start: 20141007, end: 20150706
  5. PROGESTERON [Concomitant]
     Indication: PROPHYLAXIS OF ABORTION
     Route: 067
     Dates: start: 20141021, end: 20141231
  6. MISOPROSTOL. [Concomitant]
     Active Substance: MISOPROSTOL
     Indication: LABOUR INDUCTION
     Route: 048
     Dates: start: 20150702, end: 20150702

REACTIONS (4)
  - Polyhydramnios [Recovered/Resolved]
  - Caesarean section [Unknown]
  - Exposure during pregnancy [Unknown]
  - Gestational diabetes [Recovered/Resolved]
